FAERS Safety Report 5705240-7 (Version None)
Quarter: 2008Q2

REPORT INFORMATION
  Report Type: 
  Country: None (occurrence: None)
  Receive Date: 20080410
  Receipt Date: 20080402
  Transmission Date: 20081010
  Serious: Yes (Other)
  Sender: FDA-Public Use
  Company Number: 6041953

PATIENT
  Age: 86 Year
  Sex: Female

DRUGS (10)
  1. BISOPROLOL FUMARATE [Suspect]
     Indication: HYPERTENSION
     Dosage: (1 IN 1 D), ORAL
     Route: 048
     Dates: start: 20061201, end: 20071201
  2. CALCIUM CARBONATE [Concomitant]
  3. ASPIRIN [Concomitant]
  4. DIOVAN [Concomitant]
  5. FYBOGEL (PLANTAGO OVATA) [Concomitant]
  6. GLYCERYL TRINITRATR (GLYCERYL TRINITRATE) [Concomitant]
  7. LATANOPROST [Concomitant]
  8. METHYLDOPA [Concomitant]
  9. SENNA (SENNA ALEXANDRINA) [Concomitant]
  10. ISOTARD XL (ISOSORBIDE MONONITRATE) [Concomitant]

REACTIONS (4)
  - FALL [None]
  - HALLUCINATION [None]
  - HEAD INJURY [None]
  - LOSS OF CONSCIOUSNESS [None]
